FAERS Safety Report 9915043 (Version 1)
Quarter: 2014Q1

REPORT INFORMATION
  Report Type: Spontaneous
  Country: DE (occurrence: FR)
  Receive Date: 20140220
  Receipt Date: 20140220
  Transmission Date: 20141002
  Serious: Yes (Hospitalization)
  Sender: FDA-Public Use
  Company Number: US-MERZ PHARMACEUTICALS, LLC DRUG SAFETY-14MRZ-00083

PATIENT
  Age: 30 Year
  Sex: Female

DRUGS (3)
  1. AETHOXYSKLEROL [Suspect]
     Indication: VARICOSE VEIN
     Dosage: 3 INJECTIONS; AETOXISCL?ROL TAMPONN? 0.25% (LAUROMACROGOL 400)
     Route: 042
     Dates: start: 20130926
  2. LEVOTHYROX [Concomitant]
  3. MINIDRIL [Concomitant]
     Indication: CONTRACEPTION

REACTIONS (3)
  - Posterior reversible encephalopathy syndrome [Recovering/Resolving]
  - Paraesthesia [Recovered/Resolved with Sequelae]
  - Headache [Recovering/Resolving]
